FAERS Safety Report 9948329 (Version 2)
Quarter: 2014Q1

REPORT INFORMATION
  Report Type: Report from Study
  Country: US (occurrence: US)
  Receive Date: 20140303
  Receipt Date: 20140303
  Transmission Date: 20141002
  Serious: No
  Sender: FDA-Public Use
  Company Number: US-ABBVIE-13P-163-1046287-00

PATIENT
  Age: 46 Year
  Sex: Female

DRUGS (9)
  1. HUMIRA [Suspect]
     Indication: COLITIS ULCERATIVE
     Dates: start: 20130203, end: 20130203
  2. HUMIRA [Suspect]
     Dates: start: 20130217, end: 20130217
  3. HUMIRA [Suspect]
     Dates: start: 20130303
  4. SYNTHROID [Concomitant]
     Indication: PRODUCT USED FOR UNKNOWN INDICATION
     Dosage: 0.1 MG DAILY
  5. LEXAPRO [Concomitant]
     Indication: STRESS
     Dosage: 10 MG DAILY
  6. NEXIUM [Concomitant]
     Indication: GASTROOESOPHAGEAL REFLUX DISEASE
     Dosage: 20 OR 25 MG DAILY
  7. CLARITIN [Concomitant]
     Indication: HYPERSENSITIVITY
  8. PROBIOTICS [Concomitant]
     Indication: PRODUCT USED FOR UNKNOWN INDICATION
     Dosage: DAILY
  9. EPINEPHRINE [Concomitant]
     Indication: ANAPHYLACTIC REACTION

REACTIONS (7)
  - Diabetes mellitus [Recovering/Resolving]
  - White blood cell count increased [Not Recovered/Not Resolved]
  - Anaemia [Recovering/Resolving]
  - Blood potassium decreased [Recovering/Resolving]
  - Cough [Recovering/Resolving]
  - Sinus congestion [Recovering/Resolving]
  - Candida infection [Unknown]
